FAERS Safety Report 4887714-4 (Version None)
Quarter: 2006Q1

REPORT INFORMATION
  Report Type: 
  Country: None (occurrence: None)
  Receive Date: 20060118
  Receipt Date: 20060106
  Transmission Date: 20060701
  Serious: Yes (Life-Threatening)
  Sender: FDA-Public Use
  Company Number: 200610038BFR

PATIENT
  Age: 75 Year
  Sex: Male
  Weight: 82 kg

DRUGS (5)
  1. CIPROFLOXACIN [Suspect]
     Indication: INTERSTITIAL LUNG DISEASE
     Dates: start: 20051125
  2. CORDARONE [Suspect]
     Indication: ATRIAL FIBRILLATION
     Dosage: ORAL
     Route: 048
     Dates: start: 20051113
  3. CORDARONE [Suspect]
     Indication: ATRIAL FLUTTER
     Dosage: ORAL
     Route: 048
     Dates: start: 20051113
  4. VFEND [Suspect]
     Indication: ASPERGILLOSIS
     Dosage: 200 MG, INTRAVENOUS
     Route: 042
     Dates: start: 20051117, end: 20051129
  5. CANCIDAS [Suspect]
     Indication: ASPERGILLOSIS
     Dosage: 50 MG, INTRAVENOUS
     Route: 042
     Dates: start: 20051127

REACTIONS (7)
  - APLASIA [None]
  - ARRHYTHMIA SUPRAVENTRICULAR [None]
  - ASPERGILLOSIS [None]
  - BRADYCARDIA [None]
  - CARDIAC ARREST [None]
  - ELECTROCARDIOGRAM QT PROLONGED [None]
  - INTERSTITIAL LUNG DISEASE [None]
